FAERS Safety Report 10239738 (Version 2)
Quarter: 2015Q2

REPORT INFORMATION
  Report Type: Report from Study
  Country: US (occurrence: US)
  Receive Date: 20140616
  Receipt Date: 20150429
  Transmission Date: 20150821
  Serious: Yes (Death, Other)
  Sender: FDA-Public Use
  Company Number: US-GILEAD-2014-0105263

PATIENT
  Age: 47 Year
  Sex: Male

DRUGS (9)
  1. ADCIRCA [Concomitant]
     Active Substance: TADALAFIL
  2. ATIVAN [Concomitant]
     Active Substance: LORAZEPAM
  3. AMBRISENTAN [Suspect]
     Active Substance: AMBRISENTAN
     Indication: PULMONARY ARTERIAL HYPERTENSION
     Dosage: 5 MG, QD
     Route: 065
     Dates: start: 20121025
  4. REMODULIN [Concomitant]
     Active Substance: TREPROSTINIL
  5. WARFARIN [Concomitant]
     Active Substance: WARFARIN
  6. PAROXETINE [Concomitant]
     Active Substance: PAROXETINE\PAROXETINE HYDROCHLORIDE
  7. ASPIRIN. [Concomitant]
     Active Substance: ASPIRIN
  8. FUROSEMIDE. [Concomitant]
     Active Substance: FUROSEMIDE
  9. IPRATROPIUM [Concomitant]
     Active Substance: IPRATROPIUM

REACTIONS (1)
  - Death [Fatal]
